FAERS Safety Report 8105039-0 (Version None)
Quarter: 2012Q1

REPORT INFORMATION
  Report Type: 
  Country: None (occurrence: None)
  Receive Date: 20120130
  Receipt Date: 20120116
  Transmission Date: 20120608
  Serious: Yes (Hospitalization)
  Sender: FDA-Public Use
  Company Number: US-ROCHE-1032124

PATIENT
  Age: 59 Year
  Sex: Male

DRUGS (4)
  1. METHYLPREDNISOLONE [Concomitant]
  2. MABTHERA [Suspect]
     Indication: IMMUNOGLOBULIN G4 RELATED SCLEROSING DISEASE
  3. ACETAMINOPHEN [Concomitant]
  4. DIPHENHYDRAMINE HCL [Concomitant]

REACTIONS (5)
  - HYPERSENSITIVITY [None]
  - INFUSION RELATED REACTION [None]
  - CYTOKINE RELEASE SYNDROME [None]
  - ASTHMA [None]
  - CONDITION AGGRAVATED [None]
